FAERS Safety Report 12628395 (Version 1)
Quarter: 2016Q3

REPORT INFORMATION
  Report Type: Spontaneous
  Country: US (occurrence: None)
  Receive Date: 20160805
  Receipt Date: 20160805
  Transmission Date: 20161109
  Serious: No
  Sender: FDA-Public Use
  Company Number: None

PATIENT

DRUGS (2)
  1. ACETAZOLAMIDE. [Suspect]
     Active Substance: ACETAZOLAMIDE
  2. VECURONIUM BROMIDE. [Suspect]
     Active Substance: VECURONIUM BROMIDE

REACTIONS (1)
  - Product label confusion [None]
